FAERS Safety Report 5285973-X (Version None)
Quarter: 2007Q1

REPORT INFORMATION
  Report Type: 
  Country: None (occurrence: None)
  Receive Date: 20070328
  Receipt Date: 20070314
  Transmission Date: 20070707
  Serious: Yes (Hospitalization)
  Sender: FDA-Public Use
  Company Number: 2007PV031723

PATIENT
  Age: 60 Year
  Sex: Male
  Weight: 106.1417 kg

DRUGS (7)
  1. BYETTA [Suspect]
     Indication: DIABETES MELLITUS NON-INSULIN-DEPENDENT
     Dosage: SEE IMAGE
     Route: 058
     Dates: start: 20060301, end: 20060401
  2. BYETTA [Suspect]
     Indication: DIABETES MELLITUS NON-INSULIN-DEPENDENT
     Dosage: SEE IMAGE
     Route: 058
     Dates: start: 20060401
  3. LANTUS [Concomitant]
  4. LISINOPRIL [Concomitant]
  5. NORVASC [Concomitant]
  6. HYDROCHLOROTHIAZIDE [Concomitant]
  7. ASPIRIN [Concomitant]

REACTIONS (10)
  - ANOREXIA [None]
  - BLOOD GLUCOSE INCREASED [None]
  - CHOLELITHIASIS [None]
  - CONSTIPATION [None]
  - DEHYDRATION [None]
  - DYSPEPSIA [None]
  - NEPHROLITHIASIS [None]
  - PANCREATITIS [None]
  - STOMACH DISCOMFORT [None]
  - WEIGHT DECREASED [None]
